FAERS Safety Report 14759934 (Version 1)
Quarter: 2018Q2

REPORT INFORMATION
  Report Type: Spontaneous
  Country: US (occurrence: US)
  Receive Date: 20180413
  Receipt Date: 20180413
  Transmission Date: 20180711
  Serious: No
  Sender: FDA-Public Use
  Company Number: US-MYLANLABS-2018M1013664

PATIENT
  Age: 43 Year
  Sex: Female
  Weight: 98 kg

DRUGS (1)
  1. ESTRADIOL TRANSDERMAL SYSTEM [Suspect]
     Active Substance: ESTRADIOL
     Indication: HYSTERECTOMY
     Route: 062
     Dates: end: 20180227

REACTIONS (7)
  - Wrong technique in product usage process [Unknown]
  - Application site erythema [Not Recovered/Not Resolved]
  - Application site pain [Unknown]
  - Product administered at inappropriate site [Recovered/Resolved]
  - Application site irritation [Recovered/Resolved]
  - Application site rash [Unknown]
  - Skin erosion [Unknown]

NARRATIVE: CASE EVENT DATE: 20180225
